FAERS Safety Report 24646699 (Version 1)
Quarter: 2024Q4

REPORT INFORMATION
  Report Type: Spontaneous
  Country: US (occurrence: US)
  Receive Date: 20241121
  Receipt Date: 20241121
  Transmission Date: 20250114
  Serious: Yes (Other)
  Sender: AMGEN
  Company Number: US-AMGEN-USASP2024227369

PATIENT
  Age: 81 Year
  Sex: Female

DRUGS (1)
  1. ENBREL [Suspect]
     Active Substance: ETANERCEPT
     Indication: Product used for unknown indication
     Dosage: 50 MILLIGRAM
     Route: 065

REACTIONS (3)
  - Chemotherapy [Unknown]
  - Device difficult to use [Unknown]
  - Drug dose omission by device [Unknown]

NARRATIVE: CASE EVENT DATE: 20240301
